FAERS Safety Report 6520227-2 (Version None)
Quarter: 2009Q4

REPORT INFORMATION
  Report Type: 
  Country: None (occurrence: None)
  Receive Date: 20091229
  Receipt Date: 20091224
  Transmission Date: 20100525
  Serious: Yes (Death, Life-Threatening, Other)
  Sender: FDA-Public Use
  Company Number: PHHY2009JP53335

PATIENT
  Age: 65 Year
  Sex: Male

DRUGS (8)
  1. SANDIMMUNE [Suspect]
     Indication: STEM CELL TRANSPLANT
     Dosage: 6 MG/KG
     Dates: start: 20090519
  2. VANCOMYCIN [Interacting]
     Indication: SEPSIS
     Route: 042
  3. VANCOMYCIN [Interacting]
     Route: 042
  4. METHOTREXATE [Concomitant]
     Indication: STEM CELL TRANSPLANT
  5. METHOTREXATE [Concomitant]
     Indication: GRAFT VERSUS HOST DISEASE
  6. BUSULFAN [Concomitant]
     Indication: STEM CELL TRANSPLANT
  7. CYTARABINE [Concomitant]
     Indication: STEM CELL TRANSPLANT
  8. CYCLOPHOSPHAMIDE [Concomitant]

REACTIONS (7)
  - ABDOMINAL PAIN [None]
  - ACUTE GRAFT VERSUS HOST DISEASE [None]
  - CLOSTRIDIAL INFECTION [None]
  - DIARRHOEA [None]
  - DRUG INTERACTION [None]
  - DRUG LEVEL INCREASED [None]
  - SEPSIS [None]
